FAERS Safety Report 9020387 (Version 1)
Quarter: 2013Q1

REPORT INFORMATION
  Report Type: Spontaneous
  Country: US (occurrence: US)
  Receive Date: 20130119
  Receipt Date: 20130119
  Transmission Date: 20140127
  Serious: No
  Sender: FDA-Public Use
  Company Number: US-ALLERGAN-1209074US

PATIENT
  Age: 40 Year
  Sex: Female

DRUGS (1)
  1. BOTOX COSMETIC [Suspect]
     Indication: MUSCLE HYPERTROPHY
     Dosage: 6 UNITS, SINGLE
     Route: 030
     Dates: start: 20120629, end: 20120629

REACTIONS (2)
  - Wound [Unknown]
  - Wrong technique in drug usage process [Unknown]
